FAERS Safety Report 24052689 (Version 2)
Quarter: 2025Q1

REPORT INFORMATION
  Report Type: Report from Study
  Country: PR (occurrence: PR)
  Receive Date: 20240705
  Receipt Date: 20250123
  Transmission Date: 20250408
  Serious: Yes (Life-Threatening, Hospitalization, Other)
  Sender: ABBVIE
  Company Number: PR-ABBVIE-5825410

PATIENT
  Age: 58 Year
  Sex: Female

DRUGS (2)
  1. RINVOQ [Suspect]
     Active Substance: UPADACITINIB
     Indication: Rheumatoid arthritis
     Dosage: LAST ADMIN IN 2024
     Route: 048
     Dates: start: 20200506
  2. RINVOQ [Suspect]
     Active Substance: UPADACITINIB
     Indication: Rheumatoid arthritis
     Route: 048
     Dates: start: 202405

REACTIONS (10)
  - Respiratory arrest [Unknown]
  - Ruptured cerebral aneurysm [Recovering/Resolving]
  - Loss of consciousness [Unknown]
  - Renal failure [Unknown]
  - Movement disorder [Recovering/Resolving]
  - Coma [Recovered/Resolved]
  - Gait inability [Recovering/Resolving]
  - Vomiting [Recovered/Resolved]
  - Memory impairment [Unknown]
  - Syncope [Recovered/Resolved]

NARRATIVE: CASE EVENT DATE: 20240101
